FAERS Safety Report 5438448-9 (Version None)
Quarter: 2007Q3

REPORT INFORMATION
  Report Type: 
  Country: None (occurrence: None)
  Receive Date: 20070831
  Receipt Date: 20070822
  Transmission Date: 20080115
  Serious: Yes (Hospitalization)
  Sender: FDA-Public Use
  Company Number: US-ELI_LILLY_AND_COMPANY-US200708004857

PATIENT
  Age: 82 Year
  Sex: Female

DRUGS (4)
  1. FORTEO [Suspect]
     Indication: OSTEOPOROSIS
     Dosage: UNK, UNK
     Dates: start: 20070401, end: 20070101
  2. COUMADIN [Concomitant]
     Indication: HEART VALVE REPLACEMENT
     Dosage: UNK, DAILY (1/D)
  3. NEXIUM [Concomitant]
     Dosage: UNK, DAILY (1/D)
  4. LIPITOR [Concomitant]
     Dosage: UNK, DAILY (1/D)

REACTIONS (2)
  - COLONIC POLYP [None]
  - RECTAL HAEMORRHAGE [None]
